FAERS Safety Report 7629635-X (Version None)
Quarter: 2011Q3

REPORT INFORMATION
  Report Type: 
  Country: None (occurrence: None)
  Receive Date: 20110722
  Receipt Date: 20110713
  Transmission Date: 20111222
  Serious: Yes (Other)
  Sender: FDA-Public Use
  Company Number: US-ROCHE-772787

PATIENT
  Sex: Male
  Weight: 81.6 kg

DRUGS (2)
  1. ACCUTANE [Suspect]
     Indication: ACNE
     Route: 065
     Dates: start: 19870101
  2. ACCUTANE [Suspect]
     Route: 065
     Dates: start: 20020423, end: 20020927

REACTIONS (9)
  - SACROILIITIS [None]
  - PROCTITIS ULCERATIVE [None]
  - SMALL INTESTINAL OBSTRUCTION [None]
  - SUICIDAL IDEATION [None]
  - DEPRESSION [None]
  - INFLAMMATORY BOWEL DISEASE [None]
  - ARTHRITIS [None]
  - CROHN'S DISEASE [None]
  - ANAL FISSURE [None]
